FAERS Safety Report 20036332 (Version 1)
Quarter: 2021Q4

REPORT INFORMATION
  Report Type: Report from Study
  Country: US (occurrence: UM)
  Receive Date: 20211105
  Receipt Date: 20211105
  Transmission Date: 20220303
  Serious: No
  Sender: FDA-Public Use
  Company Number: US-BIOVITRUM-2021US9605

PATIENT
  Sex: Male

DRUGS (1)
  1. DOPTELET [Suspect]
     Active Substance: AVATROMBOPAG MALEATE
     Indication: Illness
     Dosage: DOPTELET 20 MG TABS 30^S
     Route: 048

REACTIONS (2)
  - Pyrexia [Unknown]
  - Abdominal pain upper [Unknown]
